FAERS Safety Report 4480543-5 (Version None)
Quarter: 2004Q4

REPORT INFORMATION
  Report Type: 
  Country: None (occurrence: None)
  Receive Date: 20041019
  Receipt Date: 20041008
  Transmission Date: 20050328
  Serious: Yes (Death)
  Sender: FDA-Public Use
  Company Number: 2004GB02407

PATIENT
  Age: 41 Year
  Sex: Female

DRUGS (3)
  1. SEROQUEL [Suspect]
     Indication: EPILEPSY
     Dosage: 750 MG DAILY PO
     Route: 048
  2. SEROQUEL [Suspect]
     Indication: PSYCHOTIC DISORDER
     Dosage: 750 MG DAILY PO
     Route: 048
  3. CARBAMAZEPINE [Concomitant]

REACTIONS (1)
  - DEATH [None]
